FAERS Safety Report 19726214 (Version 2)
Quarter: 2021Q3

REPORT INFORMATION
  Report Type: Spontaneous
  Country: US (occurrence: US)
  Receive Date: 20210820
  Receipt Date: 20210908
  Transmission Date: 20211014
  Serious: No
  Sender: FDA-Public Use
  Company Number: US-BAUSCH-BL-2021-025408

PATIENT
  Age: 75 Year
  Sex: Female

DRUGS (3)
  1. RELISTOR [Suspect]
     Active Substance: METHYLNALTREXONE BROMIDE
     Indication: CONSTIPATION
     Route: 048
  2. RELISTOR [Suspect]
     Active Substance: METHYLNALTREXONE BROMIDE
     Indication: CONSTIPATION
     Dosage: APPROXIMATELY 40 RELISTOR INJECTIONS LEFT OVER
     Route: 058
  3. RELISTOR [Suspect]
     Active Substance: METHYLNALTREXONE BROMIDE
     Dosage: SOMETIME IN 2018, ONCE A WEEK
     Route: 058
     Dates: start: 2018, end: 20210701

REACTIONS (7)
  - Vomiting [Recovered/Resolved]
  - Drug ineffective [Unknown]
  - Injection site pain [Recovered/Resolved]
  - Injection site bruising [Recovered/Resolved]
  - Expired product administered [Unknown]
  - Constipation [Recovered/Resolved]
  - Product quality issue [Unknown]
